FAERS Safety Report 9876523 (Version 2)
Quarter: 2014Q1

REPORT INFORMATION
  Report Type: Other
  Country: US (occurrence: US)
  Receive Date: 20140206
  Receipt Date: 20140206
  Transmission Date: 20141002
  Serious: No
  Sender: FDA-Public Use
  Company Number: US-ACORDA-ACO_37527_2013

PATIENT
  Sex: Female
  Weight: 80.27 kg

DRUGS (7)
  1. AMPYRA [Suspect]
     Dosage: 10 MG, BID
     Route: 065
     Dates: start: 201006
  2. AMPYRA [Suspect]
     Indication: GAIT DISTURBANCE
  3. COPAXONE [Concomitant]
     Indication: PRODUCT USED FOR UNKNOWN INDICATION
     Dosage: 20 MG, UNK
  4. COPAXONE [Concomitant]
     Indication: PRODUCT USED FOR UNKNOWN INDICATION
     Dosage: 20 MG, QD
     Route: 030
     Dates: start: 2010
  5. LEVOTHYROXINE [Concomitant]
     Indication: THYROID DISORDER
     Dosage: 88 ?G, QD
     Route: 048
     Dates: start: 2010
  6. CYANOCOBALAMIN [Concomitant]
     Indication: PRODUCT USED FOR UNKNOWN INDICATION
     Dosage: 1000 ?G, MONTHLY
     Route: 030
     Dates: start: 2010
  7. METFORMIN [Concomitant]
     Indication: DIABETES MELLITUS
     Dosage: 500 MG, QD
     Route: 048
     Dates: start: 2010

REACTIONS (1)
  - Bone density decreased [Not Recovered/Not Resolved]
